FAERS Safety Report 17098984 (Version 2)
Quarter: 2020Q1

REPORT INFORMATION
  Report Type: Spontaneous
  Country: US (occurrence: US)
  Receive Date: 20191202
  Receipt Date: 20200304
  Transmission Date: 20200409
  Serious: Yes (Hospitalization)
  Sender: FDA-Public Use
  Company Number: US-BAYER-2019-217203

PATIENT
  Sex: Female

DRUGS (2)
  1. MIRALAX [Suspect]
     Active Substance: POLYETHYLENE GLYCOL 3350
     Indication: PANCREATITIS
     Dosage: 2 DF, QD
     Route: 048
  2. DULCOLAX (BISACODYL) [Concomitant]
     Active Substance: BISACODYL

REACTIONS (5)
  - Hospitalisation [None]
  - Drug effective for unapproved indication [None]
  - Inappropriate schedule of product administration [Unknown]
  - Product use in unapproved indication [None]
  - Off label use [Unknown]
